FAERS Safety Report 9558584 (Version 2)
Quarter: 2013Q3

REPORT INFORMATION
  Report Type: Report from Study
  Country: US (occurrence: US)
  Receive Date: 20130926
  Receipt Date: 20130926
  Transmission Date: 20140515
  Serious: Yes (Hospitalization, Other)
  Sender: FDA-Public Use
  Company Number: US-TEVA-337778USA

PATIENT
  Age: 42 Year
  Sex: Male
  Weight: 119.4 kg

DRUGS (20)
  1. FLUOROURACIL [Suspect]
     Indication: NEOPLASM
     Dosage: (2400 MG/M2,DAYS 1-3 AND 15-17 OF 28 DAY CYCLE
     Route: 042
     Dates: start: 20120402, end: 20120418
  2. FLUOROURACIL [Suspect]
     Dosage: (1920 MG/M2,DAYS 1-3 AND 15-17 OF 28 DAY CYCLE
     Route: 042
     Dates: start: 20120507, end: 20120509
  3. FOLINIC ACID [Suspect]
     Indication: NEOPLASM
     Dosage: 400 MG/M2,DAYS 1 AND 15 OF 28 DAY CYCLE
     Route: 042
     Dates: start: 20120402, end: 20120416
  4. ABT-888 [Suspect]
     Indication: NEOPLASM
     Dosage: 20 MILLIGRAM DAILY; BID ON D15-19 IN CYCLE 1. SUBSEQUENT CYCLES: BID ON D1-5, AND 15-19 OF 28D CYCLE
     Route: 048
     Dates: start: 20120416, end: 20120418
  5. ABT-888 [Suspect]
     Dosage: 20 MILLIGRAM DAILY; BID ON D15-19 IN CYCLE 1. SUBSEQUENT CYCLES: BID ON D1-5, AND 15-19 OF 28D CYCLE
     Route: 048
     Dates: start: 20120507, end: 20120511
  6. IRINOTECAN [Suspect]
     Indication: NEOPLASM
     Dosage: 150 MG/M2 , DAYS 1 AND 15 OF 28 DAY CYCLE
     Route: 042
     Dates: start: 20120402, end: 20130416
  7. IRINOTECAN [Suspect]
     Dosage: 120 MG/M2 , DAYS 1 AND 15 OF 28 DAY CYCLE
     Route: 042
     Dates: start: 20120507, end: 20120507
  8. METOPROLOL [Concomitant]
     Indication: HYPERTENSION
  9. WARFARIN [Concomitant]
     Indication: ANTICOAGULANT THERAPY
  10. PHENERGAN [Concomitant]
     Indication: NAUSEA
     Dosage: 12.5 -25 MG (EVERY 6 HOURS AS REQUIRED)
     Dates: start: 20030226
  11. LORTAB [Concomitant]
     Indication: BACK PAIN
     Dosage: 7.5/500 MG 2 TABS (EVERY 7 TO 8 HRS AS REQUIRED)
     Dates: start: 20111201
  12. CIPROFLOXACIN [Concomitant]
     Indication: ANTIBIOTIC PROPHYLAXIS
     Dosage: 1000 MILLIGRAM DAILY; 1000 MG (500 MG,2 IN 1 D)
     Dates: start: 20120303, end: 20120406
  13. CIPROFLOXACIN [Concomitant]
     Indication: STENT PLACEMENT
  14. PHENAZOPYRIDINE [Concomitant]
     Indication: DYSURIA
     Dosage: (200 MG,EVERY 8 HRS AS REQUIRED)
     Dates: start: 20120330, end: 20120402
  15. EXTRA STRENGTH BENADRYL TOPICAL CREAM (EXTRA STRENGTH BENADRYL TOPICAL [Concomitant]
     Indication: PRURITUS
     Dosage: (APPLY 3-4 TIMES DAILY)
     Route: 061
     Dates: start: 20120403, end: 20120404
  16. DIPHENHYDRAMINE HYDROCHLORIDE [Concomitant]
     Indication: PRURITUS
     Dosage: 200 MILLIGRAM DAILY; 200 MG (50 MG,4 IN 1 D)
     Dates: start: 20120403, end: 20120403
  17. LOMOTIL [Concomitant]
     Indication: DIARRHOEA
     Dosage: (1 TABLET,4 IN 1 DAY AS REQUIRED)
     Route: 048
     Dates: start: 20120402
  18. OXYCODONE HYDROCHLORIDE [Concomitant]
     Indication: PAIN
     Dosage: 40 MILLIGRAM DAILY; 40 MG (20 MG,2 IN 1 D)
     Dates: start: 20120330, end: 20120418
  19. MAGNESIUM CITRATE [Concomitant]
     Indication: ABDOMINAL PAIN
     Dosage: (7 OZ) DAILY AS REQUIRED
     Dates: start: 20120414
  20. LASIX [Concomitant]
     Indication: OEDEMA
     Dosage: 8.5714 MILLIGRAM DAILY; (20 MG, MWF AS REQUIRED)
     Dates: start: 20120413

REACTIONS (1)
  - Gastritis [Recovered/Resolved]
